FAERS Safety Report 9199740 (Version 1)
Quarter: 2013Q1

REPORT INFORMATION
  Report Type: Spontaneous
  Country: US (occurrence: None)
  Receive Date: 20130326
  Receipt Date: 20130326
  Transmission Date: 20140127
  Serious: Yes (Other)
  Sender: FDA-Public Use
  Company Number: JPI-P-030552

PATIENT
  Age: 22 Year
  Sex: Female

DRUGS (4)
  1. XYREM [Suspect]
     Indication: NARCOLEPSY
     Route: 048
     Dates: start: 201203
  2. DEXEDRINE [Concomitant]
  3. BUPROPION HYDROCHLORIDE [Concomitant]
  4. LISDEXAMFETAMINE DIMESYLATE [Concomitant]

REACTIONS (7)
  - Dizziness [None]
  - Fall [None]
  - Head injury [None]
  - Concussion [None]
  - Vision blurred [None]
  - Temporomandibular joint syndrome [None]
  - Headache [None]
